FAERS Safety Report 17150907 (Version 1)
Quarter: 2019Q4

REPORT INFORMATION
  Report Type: Report from Study
  Country: CN (occurrence: CN)
  Receive Date: 20191213
  Receipt Date: 20191213
  Transmission Date: 20200122
  Serious: Yes (Other)
  Sender: FDA-Public Use
  Company Number: CN-ROCHE-2498155

PATIENT

DRUGS (5)
  1. BEVACIZUMAB. [Suspect]
     Active Substance: BEVACIZUMAB
     Indication: GASTRIC CANCER
     Dosage: 400 MG:16 ML/BOTTLE. ADMINISTRATION ON THE FIRST DAY OF TPLF REGIMEN
     Route: 042
  2. PACLITAXEL. [Suspect]
     Active Substance: PACLITAXEL
     Indication: GASTRIC CANCER
     Dosage: 135-175 MG/M2, INTRAVENOUS DRIP FOR 3 HOURS
     Route: 041
  3. CALCIUM FOLINATE [Suspect]
     Active Substance: LEUCOVORIN CALCIUM
     Indication: GASTRIC CANCER
     Dosage: 100-200MG/M2, INTRAVENOUS DRIP FOR 2 HOURS
     Route: 041
  4. FLUOROURACIL. [Suspect]
     Active Substance: FLUOROURACIL
     Indication: GASTRIC CANCER
     Dosage: INTRAVENOUS DRIP FOR 4 HOURS
     Route: 041
  5. CISPLATIN. [Suspect]
     Active Substance: CISPLATIN
     Indication: GASTRIC CANCER
     Dosage: ADMINISTRATION ON D1-5
     Route: 041

REACTIONS (3)
  - Neurotoxicity [Unknown]
  - Abdominal discomfort [Unknown]
  - Bone marrow failure [Unknown]
